FAERS Safety Report 10145682 (Version 2)
Quarter: 2014Q2

REPORT INFORMATION
  Report Type: Spontaneous
  Country: US (occurrence: US)
  Receive Date: 20140501
  Receipt Date: 20140501
  Transmission Date: 20141212
  Serious: No
  Sender: FDA-Public Use
  Company Number: US-ABBVIE-13P-163-1138680-00

PATIENT
  Sex: Male

DRUGS (3)
  1. CREON [Suspect]
     Indication: PANCREATECTOMY
     Dosage: THREE CAPSULES THREE TIMES A DAY WITH MEALS
     Route: 048
     Dates: start: 2010
  2. ACTOS [Concomitant]
     Indication: DIABETES MELLITUS
  3. LANTUS [Concomitant]
     Indication: DIABETES MELLITUS

REACTIONS (5)
  - Oropharyngeal pain [Not Recovered/Not Resolved]
  - Abdominal pain upper [Not Recovered/Not Resolved]
  - Nausea [Not Recovered/Not Resolved]
  - Oral fungal infection [Unknown]
  - Malabsorption [Not Recovered/Not Resolved]
